FAERS Safety Report 11713742 (Version 1)
Quarter: 2015Q4

REPORT INFORMATION
  Report Type: Spontaneous
  Country: US (occurrence: US)
  Receive Date: 20151109
  Receipt Date: 20151109
  Transmission Date: 20160304
  Serious: Yes (Death, Hospitalization)
  Sender: FDA-Public Use
  Company Number: US-SUN PHARMACEUTICAL INDUSTRIES LTD-2015US-105672

PATIENT
  Age: 75 Year
  Sex: Male

DRUGS (3)
  1. PACLITAXEL. [Suspect]
     Active Substance: PACLITAXEL
     Indication: NON-SMALL CELL LUNG CANCER
     Dosage: 9 WEEK COURSE
     Route: 065
  2. ERLONITIB [Suspect]
     Active Substance: ERLOTINIB
     Indication: NON-SMALL CELL LUNG CANCER
     Route: 065
  3. CARBOPLATIN. [Suspect]
     Active Substance: CARBOPLATIN
     Indication: NON-SMALL CELL LUNG CANCER
     Dosage: 9 WEEK COURSE
     Route: 065

REACTIONS (8)
  - Multi-organ failure [Fatal]
  - Acute kidney injury [None]
  - Acute interstitial pneumonitis [Unknown]
  - Diffuse alveolar damage [Unknown]
  - Leukopenia [None]
  - Toxicity to various agents [Unknown]
  - Acute respiratory distress syndrome [Unknown]
  - Anaemia [None]
